FAERS Safety Report 5647919-1 (Version None)
Quarter: 2008Q1

REPORT INFORMATION
  Report Type: 
  Country: None (occurrence: None)
  Receive Date: 20080303
  Receipt Date: 20080217
  Transmission Date: 20080703
  Serious: Yes (Other)
  Sender: FDA-Public Use
  Company Number: FR-PFIZER INC-2008018519

PATIENT
  Sex: Male

DRUGS (1)
  1. CHANTIX [Suspect]
     Indication: SMOKING CESSATION THERAPY

REACTIONS (5)
  - CONSTIPATION [None]
  - INTRAOCULAR PRESSURE TEST [None]
  - RHINORRHOEA [None]
  - SOMNOLENCE [None]
  - VIRAL INFECTION [None]
